FAERS Safety Report 8327850-3 (Version None)
Quarter: 2012Q2

REPORT INFORMATION
  Report Type: 
  Country: None (occurrence: None)
  Receive Date: 20120502
  Receipt Date: 20120418
  Transmission Date: 20120825
  Serious: Yes (Life-Threatening)
  Sender: FDA-Public Use
  Company Number: CN-JNJFOC-20120413912

PATIENT
  Sex: Female
  Weight: 52 kg

DRUGS (2)
  1. FENTANYL [Suspect]
     Indication: HEPATIC NEOPLASM MALIGNANT
     Route: 062
     Dates: start: 20111106, end: 20111106
  2. FENTANYL [Suspect]
     Indication: CANCER PAIN
     Route: 062
     Dates: start: 20111106, end: 20111106

REACTIONS (1)
  - COMA [None]
